FAERS Safety Report 13775409 (Version 1)
Quarter: 2017Q3

REPORT INFORMATION
  Report Type: Spontaneous
  Country: US (occurrence: US)
  Receive Date: 20170720
  Receipt Date: 20170720
  Transmission Date: 20171127
  Serious: No
  Sender: FDA-Public Use
  Company Number: None

PATIENT
  Age: 53 Year
  Sex: Female

DRUGS (7)
  1. VIREAD [Suspect]
     Active Substance: TENOFOVIR DISOPROXIL FUMARATE
     Indication: HEPATITIS C
     Route: 048
     Dates: start: 201307
  2. FISH OIL [Concomitant]
     Active Substance: FISH OIL
  3. LUTEIN [Concomitant]
     Active Substance: LUTEIN
  4. BIOTIN [Concomitant]
     Active Substance: BIOTIN
  5. VITAMIN D3 [Concomitant]
     Active Substance: CHOLECALCIFEROL
  6. MILK THISTLE [Concomitant]
     Active Substance: MILK THISTLE
  7. SPIRONOLACT [Concomitant]

REACTIONS (1)
  - Alopecia [None]

NARRATIVE: CASE EVENT DATE: 201707
